FAERS Safety Report 16527111 (Version 1)
Quarter: 2019Q3

REPORT INFORMATION
  Report Type: Spontaneous
  Country: US (occurrence: US)
  Receive Date: 20190703
  Receipt Date: 20190703
  Transmission Date: 20191004
  Serious: Yes (Other)
  Sender: FDA-Public Use
  Company Number: US-PFIZER INC-2019281143

PATIENT
  Age: 44 Year
  Sex: Female
  Weight: 90.72 kg

DRUGS (2)
  1. EUCRISA [Suspect]
     Active Substance: CRISABOROLE
     Indication: DRY SKIN
     Dosage: 2%, APPLIES DAILY TO FEET AND HANDS
  2. MELOXICAM. [Concomitant]
     Active Substance: MELOXICAM
     Indication: PAIN
     Dates: start: 201901, end: 201903

REACTIONS (4)
  - Off label use [Unknown]
  - Joint injury [Recovering/Resolving]
  - Product use in unapproved indication [Unknown]
  - Fall [Recovering/Resolving]

NARRATIVE: CASE EVENT DATE: 20190112
